FAERS Safety Report 9159320 (Version 1)
Quarter: 2013Q1

REPORT INFORMATION
  Report Type: Spontaneous
  Country: FR (occurrence: FR)
  Receive Date: 20130313
  Receipt Date: 20130313
  Transmission Date: 20140127
  Serious: Yes (Hospitalization, Other)
  Sender: FDA-Public Use
  Company Number: FR-JNJFOC-20130300436

PATIENT
  Age: 62 Year
  Sex: Female

DRUGS (5)
  1. SPORANOX [Suspect]
     Indication: BRONCHOPULMONARY ASPERGILLOSIS ALLERGIC
     Route: 065
     Dates: start: 2003
  2. AMIODARONE [Suspect]
     Indication: ARRHYTHMIA SUPRAVENTRICULAR
     Route: 065
     Dates: end: 2009
  3. PREDNISOLONE [Suspect]
     Indication: RESPIRATORY FAILURE
     Route: 048
  4. BUDESONIDE [Suspect]
     Indication: CHRONIC RESPIRATORY FAILURE
     Route: 055
  5. BUDESONIDE [Suspect]
     Indication: ASTHMA
     Route: 055

REACTIONS (3)
  - Diabetes mellitus inadequate control [Unknown]
  - Non-alcoholic steatohepatitis [Unknown]
  - Cushing^s syndrome [Unknown]
